FAERS Safety Report 13110493 (Version 1)
Quarter: 2017Q1

REPORT INFORMATION
  Report Type: Spontaneous
  Country: US (occurrence: US)
  Receive Date: 20170112
  Receipt Date: 20170112
  Transmission Date: 20170428
  Serious: Yes (Other)
  Sender: FDA-Public Use
  Company Number: US-ROCHE-1099274

PATIENT
  Age: 44 Year
  Sex: Male

DRUGS (9)
  1. ASPIRIN. [Concomitant]
     Active Substance: ASPIRIN
     Route: 048
  2. NICORETTE [Concomitant]
     Active Substance: NICOTINE
  3. NITROGLYCERIN. [Concomitant]
     Active Substance: NITROGLYCERIN
     Indication: CHEST PAIN
     Dosage: 1/150 GR
     Route: 060
  4. ACTIVASE [Suspect]
     Active Substance: ALTEPLASE
     Indication: ACUTE MYOCARDIAL INFARCTION
     Route: 065
  5. CARDIZEM [Concomitant]
     Active Substance: DILTIAZEM HYDROCHLORIDE
     Route: 048
  6. VALIUM [Concomitant]
     Active Substance: DIAZEPAM
     Route: 065
  7. VASOTEC [Concomitant]
     Active Substance: ENALAPRIL MALEATE
     Route: 048
  8. MAXZIDE [Concomitant]
     Active Substance: HYDROCHLOROTHIAZIDE\TRIAMTERENE
     Dosage: ONE HALF TABLET
     Route: 048
  9. PERSANTINE [Concomitant]
     Active Substance: DIPYRIDAMOLE
     Route: 065

REACTIONS (1)
  - Atrioventricular block complete [Recovered/Resolved]
